FAERS Safety Report 7336088-8 (Version None)
Quarter: 2011Q1

REPORT INFORMATION
  Report Type: 
  Country: None (occurrence: None)
  Receive Date: 20110307
  Receipt Date: 20110301
  Transmission Date: 20110831
  Serious: Yes (Death, Hospitalization, Other)
  Sender: FDA-Public Use
  Company Number: BR-ABBOTT-11P-020-0708409-00

PATIENT
  Age: 4 Year
  Sex: Male

DRUGS (1)
  1. VALPROATE SODIUM [Suspect]
     Indication: PRODUCT USED FOR UNKNOWN INDICATION

REACTIONS (11)
  - MYOCLONIC EPILEPSY [None]
  - HEPATIC STEATOSIS [None]
  - HYPOVOLAEMIC SHOCK [None]
  - ABDOMINAL PAIN [None]
  - HAEMODYNAMIC INSTABILITY [None]
  - JAUNDICE [None]
  - DEPRESSED LEVEL OF CONSCIOUSNESS [None]
  - LIVER INJURY [None]
  - NAUSEA [None]
  - SOMNOLENCE [None]
  - PANCREATITIS ACUTE [None]
